FAERS Safety Report 21907020 (Version 3)
Quarter: 2025Q1

REPORT INFORMATION
  Report Type: Report from Study
  Country: CA (occurrence: CA)
  Receive Date: 20230125
  Receipt Date: 20250127
  Transmission Date: 20250409
  Serious: Yes (Life-Threatening)
  Sender: JOHNSON AND JOHNSON
  Company Number: CA-JNJFOC-20230144781

PATIENT
  Age: 20 Year
  Sex: Female

DRUGS (2)
  1. REMICADE [Suspect]
     Active Substance: INFLIXIMAB
     Indication: Crohn^s disease
     Dosage: PATIENT RECEIVED TREATMENT ON 20-JAN-2023
     Route: 041
     Dates: end: 2023
  2. REMICADE [Suspect]
     Active Substance: INFLIXIMAB
     Route: 041
     Dates: start: 20190529

REACTIONS (4)
  - Hypersensitivity [Recovered/Resolved]
  - Paraesthesia oral [Recovered/Resolved]
  - Incorrect drug administration rate [Unknown]
  - Therapy cessation [Unknown]

NARRATIVE: CASE EVENT DATE: 20230120
